FAERS Safety Report 7640715-5 (Version None)
Quarter: 2011Q3

REPORT INFORMATION
  Report Type: 
  Country: None (occurrence: None)
  Receive Date: 20110721
  Receipt Date: 20110711
  Transmission Date: 20111222
  Serious: Yes (Other)
  Sender: FDA-Public Use
  Company Number: IMP_05408_2011

PATIENT
  Sex: Male

DRUGS (3)
  1. BRANDED TAMSULOSIN [Suspect]
     Indication: PRODUCT USED FOR UNKNOWN INDICATION
     Dosage: (DF)
  2. TAMSULOSIN HYDROCHLORIDE [Suspect]
     Indication: PRODUCT USED FOR UNKNOWN INDICATION
     Dosage: (DF)
     Dates: start: 20110501
  3. BRANDED TAMSULOSIN [Suspect]
     Indication: PRODUCT USED FOR UNKNOWN INDICATION
     Dosage: (DF)
     Dates: start: 20110401

REACTIONS (4)
  - PRODUCT QUALITY ISSUE [None]
  - EJACULATION FAILURE [None]
  - VIITH NERVE PARALYSIS [None]
  - DRUG INEFFECTIVE [None]
